FAERS Safety Report 8982726 (Version 2)
Quarter: 2013Q1

REPORT INFORMATION
  Report Type: Spontaneous
  Country: DE (occurrence: DE)
  Receive Date: 20121221
  Receipt Date: 20130116
  Transmission Date: 20140127
  Serious: Yes (Hospitalization)
  Sender: FDA-Public Use
  Company Number: DE-VERTEX PHARMACEUTICALS INC.-2012-026567

PATIENT
  Age: 52 Year
  Sex: Male
  Weight: 65 kg

DRUGS (7)
  1. INCIVO [Suspect]
     Indication: HEPATITIS C
     Dosage: DOSAGE FORM: TABLET
     Route: 048
     Dates: start: 20111101, end: 20111210
  2. INCIVO [Suspect]
     Indication: CHRONIC HEPATITIS C
  3. PEG-INTERFERON [Suspect]
     Indication: CHRONIC HEPATITIS C
     Dosage: 180 ?G, QW
     Route: 058
     Dates: start: 20111101, end: 20111206
  4. RIBAVIRIN [Suspect]
     Indication: CHRONIC HEPATITIS C
     Dosage: 500 MG, BID
     Route: 048
     Dates: start: 20111101, end: 20111212
  5. RAMIPRIL [Concomitant]
     Indication: HYPERTENSION
     Dosage: 250 MG, QD
     Route: 048
     Dates: start: 20110501
  6. RAMIPRIL [Concomitant]
  7. SUBUTEX [Concomitant]
     Dosage: 8 MG, QD
     Route: 048
     Dates: start: 20110401

REACTIONS (1)
  - Psychotic disorder [Not Recovered/Not Resolved]
